FAERS Safety Report 6245035-1 (Version None)
Quarter: 2009Q2

REPORT INFORMATION
  Report Type: 
  Country: None (occurrence: None)
  Receive Date: 20090619
  Receipt Date: 20090123
  Transmission Date: 20091009
  Serious: Yes (Hospitalization)
  Sender: FDA-Public Use
  Company Number: 2009PL000099

PATIENT
  Age: 38 Year
  Sex: Male
  Weight: 91 kg

DRUGS (10)
  1. IMURAN [Suspect]
     Indication: CROHN'S DISEASE
     Dosage: 200 MG;QD
     Dates: start: 20060315
  2. PLACEBO (PLACEBO) LYOPHILIZED POWDER [Suspect]
     Indication: CROHN'S DISEASE
     Dosage: 460 MG;QD;IV
     Route: 042
     Dates: start: 20060315
  3. ATENOLOL [Concomitant]
  4. HYDROCHLOROTHIAZIDE [Concomitant]
  5. NEXIUM [Concomitant]
  6. SLOW FE [Concomitant]
  7. IMODIUM [Concomitant]
  8. BENADRYL [Concomitant]
  9. TYLENOL (CAPLET) [Concomitant]
  10. ULTRAM [Concomitant]

REACTIONS (1)
  - PANCREATITIS [None]
